FAERS Safety Report 6558671-X (Version None)
Quarter: 2010Q1

REPORT INFORMATION
  Report Type: 
  Country: None (occurrence: None)
  Receive Date: 20100128
  Receipt Date: 20100128
  Transmission Date: 20100710
  Serious: Yes (Life-Threatening, Hospitalization, Disabling)
  Sender: FDA-Public Use
  Company Number: None

PATIENT
  Age: 80 Year
  Sex: Female
  Weight: 61.2356 kg

DRUGS (2)
  1. EVISTA [Suspect]
     Indication: BONE DENSITY DECREASED
     Dosage: 60MG 1X ORAL
     Route: 048
     Dates: start: 20090616, end: 20090721
  2. EVISTA [Suspect]
     Indication: OSTEOPOROSIS
     Dosage: 60MG 1X ORAL
     Route: 048
     Dates: start: 20090616, end: 20090721

REACTIONS (7)
  - AMNESIA [None]
  - BRAIN SCAN ABNORMAL [None]
  - CEREBROVASCULAR ACCIDENT [None]
  - CEREBROVASCULAR DISORDER [None]
  - DEPRESSION [None]
  - HEART VALVE INCOMPETENCE [None]
  - TRANSIENT ISCHAEMIC ATTACK [None]
